FAERS Safety Report 6983021-4 (Version None)
Quarter: 2010Q3

REPORT INFORMATION
  Report Type: 
  Country: None (occurrence: None)
  Receive Date: 20100914
  Receipt Date: 20100512
  Transmission Date: 20110219
  Serious: Yes (Other)
  Sender: FDA-Public Use
  Company Number: US-PFIZER INC-2010060583

PATIENT
  Sex: Male

DRUGS (2)
  1. LYRICA [Suspect]
     Indication: NEURALGIA
     Dosage: 50 MG, 3X/DAY
     Route: 048
     Dates: start: 20100420, end: 20100426
  2. FENOFIBRATE [Concomitant]
     Dosage: UNK

REACTIONS (4)
  - BLISTER [None]
  - ERYTHEMA [None]
  - OEDEMA PERIPHERAL [None]
  - PARAESTHESIA [None]
